FAERS Safety Report 4940395-3 (Version None)
Quarter: 2006Q1

REPORT INFORMATION
  Report Type: 
  Country: None (occurrence: None)
  Receive Date: 20060310
  Receipt Date: 20060201
  Transmission Date: 20060701
  Serious: Yes (Hospitalization)
  Sender: FDA-Public Use
  Company Number: JP-MERCK-0602USA00649

PATIENT
  Age: 22 Year
  Sex: Male

DRUGS (6)
  1. MAXALT [Suspect]
     Indication: MIGRAINE
     Route: 048
     Dates: start: 20060124, end: 20060124
  2. MAXALT [Suspect]
     Route: 048
     Dates: start: 20060125, end: 20060125
  3. MAXALT [Suspect]
     Route: 048
     Dates: start: 20060125, end: 20060125
  4. MAXALT [Suspect]
     Route: 048
     Dates: start: 20060128, end: 20060128
  5. MAGNESIUM OXIDE [Concomitant]
     Route: 048
  6. PANTETHINE [Concomitant]
     Route: 048

REACTIONS (1)
  - SUPRAVENTRICULAR TACHYCARDIA [None]
